FAERS Safety Report 16240508 (Version 2)
Quarter: 2019Q2

REPORT INFORMATION
  Report Type: Report from Study
  Country: US (occurrence: US)
  Receive Date: 20190425
  Receipt Date: 20190430
  Transmission Date: 20190711
  Serious: Yes (Hospitalization, Other)
  Sender: FDA-Public Use
  Company Number: US-GILEAD-2018-0315014

PATIENT
  Age: 1 Year
  Sex: Female
  Weight: 7.4 kg

DRUGS (21)
  1. AMBRISENTAN [Suspect]
     Active Substance: AMBRISENTAN
     Indication: HEART DISEASE CONGENITAL
     Dosage: 5 MG, QD
     Route: 065
  2. AMBRISENTAN [Suspect]
     Active Substance: AMBRISENTAN
     Indication: TRISOMY 18
  3. POLYVISOL                          /02170301/ [Concomitant]
  4. FUROSEMIDE. [Concomitant]
     Active Substance: FUROSEMIDE
  5. VENTOLINE [SALBUTAMOL] [Concomitant]
     Active Substance: ALBUTEROL SULFATE
  6. URSODIOL. [Concomitant]
     Active Substance: URSODIOL
  7. MYCOSTATIN [Concomitant]
     Active Substance: NYSTATIN
  8. POTASSIUM CHLORIDE. [Concomitant]
     Active Substance: POTASSIUM CHLORIDE
  9. TADAFIL [Concomitant]
     Active Substance: TADALAFIL
  10. PRILOSEC [Concomitant]
     Active Substance: OMEPRAZOLE MAGNESIUM
  11. CLARITIN [Concomitant]
     Active Substance: LORATADINE
  12. AMBRISENTAN [Suspect]
     Active Substance: AMBRISENTAN
     Indication: PULMONARY ARTERIAL HYPERTENSION
     Dosage: 2.5 MG, QD
     Route: 065
     Dates: start: 20180110, end: 20180115
  13. AMBRISENTAN [Suspect]
     Active Substance: AMBRISENTAN
     Indication: LUNG DISORDER
  14. DERMAPHOR [Concomitant]
     Active Substance: PETROLATUM
  15. REGLAN [Concomitant]
     Active Substance: METOCLOPRAMIDE HYDROCHLORIDE
  16. PULMICORT TURBUHALER [Concomitant]
     Active Substance: BUDESONIDE
  17. ATROVENT [Concomitant]
     Active Substance: IPRATROPIUM BROMIDE
  18. VITAMIN D3 [Concomitant]
     Active Substance: CHOLECALCIFEROL
  19. SIMETHICONE (DIMETHICONE) [Concomitant]
     Active Substance: DIMETHICONE
  20. TYLENOL [Concomitant]
     Active Substance: ACETAMINOPHEN
  21. MOTRIN [Concomitant]
     Active Substance: IBUPROFEN

REACTIONS (18)
  - Retching [Recovered/Resolved]
  - Urine output decreased [Unknown]
  - Hyperhidrosis [Not Recovered/Not Resolved]
  - Respiratory rate increased [Unknown]
  - Heart rate increased [Unknown]
  - Incorrect route of product administration [Recovered/Resolved]
  - Hepatic cancer [Unknown]
  - Irritability [Recovered/Resolved]
  - Irritability [Recovered/Resolved]
  - Cough [Recovered/Resolved]
  - Off label use [Not Recovered/Not Resolved]
  - Gastric residual increased [Recovered/Resolved]
  - Gastrooesophageal reflux disease [Recovered/Resolved]
  - Infrequent bowel movements [Unknown]
  - Flushing [Not Recovered/Not Resolved]
  - Wrong technique in product usage process [Recovered/Resolved]
  - Abdominal pain [Recovered/Resolved]
  - Lung lobectomy [Recovering/Resolving]

NARRATIVE: CASE EVENT DATE: 20180110
